FAERS Safety Report 7543650-6 (Version None)
Quarter: 2011Q2

REPORT INFORMATION
  Report Type: 
  Country: None (occurrence: None)
  Receive Date: 20110613
  Receipt Date: 20030606
  Transmission Date: 20111010
  Serious: Yes (Other)
  Sender: FDA-Public Use
  Company Number: PHFR2003GB01861

PATIENT
  Sex: Male

DRUGS (7)
  1. CLOZAPINE [Suspect]
     Indication: SCHIZOPHRENIA
     Dosage: 650 MG/DAY
     Route: 048
     Dates: start: 20001201
  2. CLOPIDOGREL [Suspect]
  3. ATENOLOL [Suspect]
     Dosage: 26X50MG OVERDOSE
     Route: 048
     Dates: start: 20030423
  4. CLOZAPINE [Suspect]
     Dosage: 3000MG OVERDOSE
     Route: 048
     Dates: start: 20030423
  5. VALPROATE SODIUM [Concomitant]
  6. CLOPIXOL (DECANOATE) [Suspect]
     Dosage: 28X100MG OVERDOSE
     Route: 048
     Dates: start: 20030423
  7. GAVISCON [Concomitant]

REACTIONS (5)
  - MENTAL DISORDER [None]
  - VOMITING [None]
  - RETCHING [None]
  - DYSPEPSIA [None]
  - OVERDOSE [None]
